FAERS Safety Report 8850794 (Version 3)
Quarter: 2017Q4

REPORT INFORMATION
  Report Type: Spontaneous
  Country: US (occurrence: US)
  Receive Date: 20121019
  Receipt Date: 20171215
  Transmission Date: 20180321
  Serious: Yes (Hospitalization, Disabling, Other)
  Sender: FDA-Public Use
  Company Number: US-009507513-1210USA004445

PATIENT
  Sex: Female
  Weight: 70.75 kg

DRUGS (7)
  1. LIPITOR [Concomitant]
     Active Substance: ATORVASTATIN CALCIUM
     Indication: TYPE IIA HYPERLIPIDAEMIA
     Dosage: 20 MG, QD
     Route: 048
  2. ACETAMINOPHEN. [Concomitant]
     Active Substance: ACETAMINOPHEN
     Dosage: 1000 MG, QD
     Route: 048
  3. VITAMINS (UNSPECIFIED) [Concomitant]
     Active Substance: VITAMINS
     Dosage: 1 DF, QD
  4. FOSAMAX [Suspect]
     Active Substance: ALENDRONATE SODIUM
     Indication: OSTEOPOROSIS
     Dosage: 70 MG, QW
     Route: 048
     Dates: start: 200105, end: 201101
  5. ALENDRONATE SODIUM. [Suspect]
     Active Substance: ALENDRONATE SODIUM
     Indication: OSTEOPOROSIS
     Dosage: 70 MG, QW
     Route: 048
     Dates: start: 200105, end: 201101
  6. ASPIRIN. [Concomitant]
     Active Substance: ASPIRIN
     Dosage: 81 MG, QD
     Route: 048
  7. CALCIUM (UNSPECIFIED) (+) VITAMIN D (UNSPECIFIED) [Concomitant]
     Active Substance: CALCIUM CARBONATE\VITAMIN D
     Dosage: 1200/1000MG DAILY
     Route: 048

REACTIONS (21)
  - Thrombocytopenia [Unknown]
  - Meralgia paraesthetica [Unknown]
  - Ligament sprain [Unknown]
  - Lumbar spinal stenosis [Recovered/Resolved]
  - Spinal claudication [Recovered/Resolved]
  - Spinal fracture [Unknown]
  - Urinary retention [Recovered/Resolved]
  - Metabolic encephalopathy [Recovered/Resolved]
  - Bone disorder [Unknown]
  - Hypertension [Unknown]
  - Electrocardiogram abnormal [Unknown]
  - Presyncope [Recovered/Resolved]
  - Laceration [Unknown]
  - Spinal osteoarthritis [Unknown]
  - Femur fracture [Recovering/Resolving]
  - Seborrhoeic keratosis [Unknown]
  - Atelectasis [Unknown]
  - Anaemia [Unknown]
  - Fall [Unknown]
  - Osteoarthritis [Unknown]
  - Urinary tract infection [Unknown]

NARRATIVE: CASE EVENT DATE: 201009
